FAERS Safety Report 6759851-0 (Version None)
Quarter: 2010Q2

REPORT INFORMATION
  Report Type: 
  Country: None (occurrence: None)
  Receive Date: 20100608
  Receipt Date: 20100601
  Transmission Date: 20101027
  Serious: Yes (Death)
  Sender: FDA-Public Use
  Company Number: PHHY2010JP05750

PATIENT
  Sex: Male
  Weight: 54 kg

DRUGS (7)
  1. ZOMETA [Suspect]
     Indication: METASTASES TO BONE
     Dosage: 4 MG, UNK
     Route: 042
     Dates: start: 20091212
  2. BFLUID [Concomitant]
     Indication: TRANSFUSION
     Dosage: 1000 ML DAILY
     Route: 042
     Dates: start: 20091101
  3. ROPION [Concomitant]
     Indication: PAIN
     Dosage: 50MG
     Route: 042
     Dates: start: 20091103
  4. MEROPEN [Concomitant]
     Indication: PROPHYLAXIS
     Dosage: 1.5 G DAILY
     Route: 042
     Dates: start: 20091218
  5. MORPHINE [Concomitant]
  6. ROCEPHIN [Concomitant]
     Indication: INFECTION PROPHYLAXIS
     Dosage: 1G
     Route: 042
     Dates: start: 20091101, end: 20091107
  7. STEROIDS NOS [Concomitant]

REACTIONS (9)
  - BLOOD LACTATE DEHYDROGENASE INCREASED [None]
  - C-REACTIVE PROTEIN INCREASED [None]
  - COUGH [None]
  - HAEMOGLOBIN DECREASED [None]
  - INTERSTITIAL LUNG DISEASE [None]
  - OXYGEN SATURATION DECREASED [None]
  - PYREXIA [None]
  - RED BLOOD CELL COUNT DECREASED [None]
  - WHITE BLOOD CELL COUNT INCREASED [None]
